FAERS Safety Report 14843738 (Version 6)
Quarter: 2018Q3

REPORT INFORMATION
  Report Type: Report from Study
  Country: US (occurrence: US)
  Receive Date: 20180503
  Receipt Date: 20180710
  Transmission Date: 20181010
  Serious: Yes (Death, Hospitalization)
  Sender: FDA-Public Use
  Company Number: US-ACTELION-A-NJ2018-169213

PATIENT
  Age: 67 Year
  Sex: Female
  Weight: 70.3 kg

DRUGS (13)
  1. VELETRI [Suspect]
     Active Substance: EPOPROSTENOL
     Dosage: 9 NG/KG, PER MIN
     Route: 042
  2. PROTONIX [Concomitant]
     Active Substance: PANTOPRAZOLE SODIUM
     Dosage: UNK
  3. PRAVACHOL [Concomitant]
     Active Substance: PRAVASTATIN SODIUM
     Dosage: UNK
  4. FLONASE [Concomitant]
     Active Substance: FLUTICASONE PROPIONATE
     Dosage: UNK
  5. VELETRI [Suspect]
     Active Substance: EPOPROSTENOL
     Dosage: 10 NG/KG, PER MIN
     Route: 042
     Dates: end: 20180527
  6. ASPIRIN. [Concomitant]
     Active Substance: ASPIRIN
     Dosage: UNK
  7. CLARITIN [Concomitant]
     Active Substance: LORATADINE
     Dosage: UNK
  8. VELETRI [Suspect]
     Active Substance: EPOPROSTENOL
     Indication: PULMONARY HYPERTENSION
     Dosage: 8 NG/KG, PER MIN
     Route: 042
     Dates: start: 20180228
  9. OXYGEN. [Concomitant]
     Active Substance: OXYGEN
     Dosage: 8?15 L AT HOME
  10. APRESOLINE HYDROCHLORIDE [Concomitant]
     Active Substance: HYDRALAZINE HYDROCHLORIDE
     Dosage: UNK
  11. ALBUTEROL. [Concomitant]
     Active Substance: ALBUTEROL
     Dosage: UNK
  12. WARFARIN [Concomitant]
     Active Substance: WARFARIN
  13. COLCRYS [Concomitant]
     Active Substance: COLCHICINE
     Dosage: UNK

REACTIONS (18)
  - Respiratory failure [Fatal]
  - Dyspnoea [Recovering/Resolving]
  - Flushing [Recovering/Resolving]
  - Back pain [Unknown]
  - Condition aggravated [Fatal]
  - Device deployment issue [Recovered/Resolved]
  - Hypoxia [Fatal]
  - Drug intolerance [Unknown]
  - Acute respiratory failure [Recovering/Resolving]
  - Oxygen saturation decreased [Recovering/Resolving]
  - Transplant evaluation [Unknown]
  - Chest discomfort [Unknown]
  - Pneumonia [Recovering/Resolving]
  - Pulmonary veno-occlusive disease [Unknown]
  - Cough [Unknown]
  - Atrial fibrillation [Recovered/Resolved]
  - Cardiac failure [Unknown]
  - Asthenia [Unknown]
